FAERS Safety Report 25442002 (Version 1)
Quarter: 2025Q2

REPORT INFORMATION
  Report Type: Spontaneous
  Country: US (occurrence: US)
  Receive Date: 20250616
  Receipt Date: 20250616
  Transmission Date: 20250716
  Serious: No
  Sender: JOHNSON AND JOHNSON
  Company Number: US-JNJFOC-20250612643

PATIENT
  Age: 60 Year
  Sex: Female

DRUGS (2)
  1. TREMFYA [Suspect]
     Active Substance: GUSELKUMAB
     Indication: Colitis ulcerative
     Route: 042
  2. TREMFYA [Suspect]
     Active Substance: GUSELKUMAB
     Indication: Crohn^s disease

REACTIONS (3)
  - Sneezing [Recovered/Resolved]
  - Cough [Recovered/Resolved]
  - Off label use [Unknown]
